FAERS Safety Report 15010923 (Version 1)
Quarter: 2018Q2

REPORT INFORMATION
  Report Type: Spontaneous
  Country: GR (occurrence: GR)
  Receive Date: 20180614
  Receipt Date: 20180614
  Transmission Date: 20180711
  Serious: Yes (Disabling)
  Sender: FDA-Public Use
  Company Number: GR-ASTRAZENECA-2018SE75184

PATIENT
  Age: 68 Year
  Sex: Female
  Weight: 75 kg

DRUGS (2)
  1. CRESTOR [Suspect]
     Active Substance: ROSUVASTATIN CALCIUM
     Indication: DYSLIPIDAEMIA
     Route: 048
     Dates: start: 20160803, end: 20170207
  2. EZETROL [Concomitant]
     Active Substance: EZETIMIBE
     Indication: DYSLIPIDAEMIA
     Route: 048
     Dates: start: 20160803

REACTIONS (3)
  - Blood creatine phosphokinase [Recovered/Resolved]
  - Myalgia [Recovered/Resolved]
  - Aspartate aminotransferase [Recovered/Resolved]

NARRATIVE: CASE EVENT DATE: 20160803
